FAERS Safety Report 24421838 (Version 3)
Quarter: 2024Q4

REPORT INFORMATION
  Report Type: Spontaneous
  Country: FR (occurrence: FR)
  Receive Date: 20241010
  Receipt Date: 20241107
  Transmission Date: 20250115
  Serious: No
  Sender: SANOFI AVENTIS
  Company Number: FR-BIOVITRUM-2024-FR-012741

PATIENT
  Age: 67 Year
  Sex: Male

DRUGS (2)
  1. EFMOROCTOCOG ALFA [Suspect]
     Active Substance: EFMOROCTOCOG ALFA
     Indication: Factor VIII deficiency
     Dosage: 1 DF (INJECTION), QW
  2. EFMOROCTOCOG ALFA [Suspect]
     Active Substance: EFMOROCTOCOG ALFA
     Indication: Factor VIII deficiency
     Dosage: 1 DF (INJECTION), QW

REACTIONS (1)
  - No adverse event [Unknown]
